FAERS Safety Report 8359194-8 (Version None)
Quarter: 2012Q2

REPORT INFORMATION
  Report Type: 
  Country: None (occurrence: None)
  Receive Date: 20120515
  Receipt Date: 20120430
  Transmission Date: 20120825
  Serious: Yes (Hospitalization)
  Sender: FDA-Public Use
  Company Number: CA-AMGEN-CANSP2012018434

PATIENT
  Age: 75 Year
  Sex: Male

DRUGS (6)
  1. DICLOFENAC SODIUM [Concomitant]
     Indication: ARTHRITIS
     Dosage: 75 MG, QD
     Route: 048
  2. ENBREL [Suspect]
     Dosage: 50 MG, QWK
     Dates: end: 20111221
  3. ARTHROTEC [Concomitant]
     Dosage: UNK
  4. ENBREL [Suspect]
     Indication: RHEUMATOID ARTHRITIS
     Dosage: 50 MG, QWK
     Route: 058
     Dates: start: 20100409
  5. ENBREL [Suspect]
     Dosage: 50 MG, QWK
     Dates: start: 20120321
  6. HEPTOVIR [Concomitant]
     Indication: HEPATITIS B
     Dosage: 100 MG, QD
     Route: 048

REACTIONS (4)
  - DYSPNOEA [None]
  - PNEUMONIA [None]
  - ATELECTASIS [None]
  - PLEURAL EFFUSION [None]
